FAERS Safety Report 23894698 (Version 2)
Quarter: 2024Q3

REPORT INFORMATION
  Report Type: Spontaneous
  Country: DE (occurrence: DE)
  Receive Date: 20240524
  Receipt Date: 20240711
  Transmission Date: 20241016
  Serious: Yes (Hospitalization)
  Sender: TAKEDA
  Company Number: DE-TAKEDA-2024TUS050479

PATIENT
  Age: 23 Year
  Sex: Male

DRUGS (1)
  1. ENTYVIO [Suspect]
     Active Substance: VEDOLIZUMAB
     Indication: Pouchitis
     Dosage: UNK
     Route: 042

REACTIONS (2)
  - Pouchitis [Unknown]
  - Therapy non-responder [Unknown]
